FAERS Safety Report 11802667 (Version 1)
Quarter: 2015Q4

REPORT INFORMATION
  Report Type: Spontaneous
  Country: US (occurrence: None)
  Receive Date: 20151203
  Receipt Date: 20151203
  Transmission Date: 20160305
  Serious: No
  Sender: FDA-Public Use
  Company Number: None

PATIENT
  Age: 4 Year
  Sex: Male
  Weight: 17.69 kg

DRUGS (3)
  1. FLINSTONES VITAMINS [Concomitant]
  2. CIMETIDINE 300MG/ 5 ML SOLUTION [Suspect]
     Active Substance: CIMETIDINE
     Indication: MOLLUSCUM CONTAGIOSUM
     Route: 048
  3. CHILDREN^S CETURIZIME HYDROCHLORIDE [Concomitant]

REACTIONS (1)
  - Sneezing [None]
